FAERS Safety Report 21696489 (Version 1)
Quarter: 2022Q4

REPORT INFORMATION
  Report Type: Spontaneous
  Country: US (occurrence: US)
  Receive Date: 20221207
  Receipt Date: 20221207
  Transmission Date: 20230113
  Serious: Yes (Other)
  Sender: FDA-Public Use
  Company Number: US-BRISTOL-MYERS SQUIBB COMPANY-2022-149269

PATIENT
  Age: 69 Year
  Sex: Male

DRUGS (2)
  1. OPDIVO [Suspect]
     Active Substance: NIVOLUMAB
     Indication: Neuroendocrine carcinoma of the skin
     Dosage: FREQ : EVERY 3 WEEKS FOR BOTH
     Route: 042
     Dates: start: 20220803, end: 20221205
  2. YERVOY [Suspect]
     Active Substance: IPILIMUMAB
     Indication: Neuroendocrine carcinoma of the skin
     Dosage: FREQ:EVERY 3 WEEKS
     Route: 042
     Dates: start: 20220803, end: 20221205

REACTIONS (2)
  - Adverse event [Unknown]
  - Off label use [Unknown]
